FAERS Safety Report 15814942 (Version 3)
Quarter: 2019Q1

REPORT INFORMATION
  Report Type: Spontaneous
  Country: FR (occurrence: FR)
  Receive Date: 20190111
  Receipt Date: 20190305
  Transmission Date: 20190417
  Serious: Yes (Hospitalization)
  Sender: FDA-Public Use
  Company Number: FR-ACCORD-101634

PATIENT
  Age: 77 Year
  Sex: Female
  Weight: 66 kg

DRUGS (11)
  1. GRANOCYTE [Concomitant]
     Active Substance: LENOGRASTIM
  2. MABTHERA [Suspect]
     Active Substance: RITUXIMAB
     Indication: LYMPHOMA
     Dosage: 623 MG, ONE TIME DOSE (1 IN 1 TOTAL)
     Route: 042
     Dates: start: 20180206, end: 20180206
  3. BENDAMUSTINE/BENDAMUSTINE HYDROCHLORIDE [Suspect]
     Active Substance: BENDAMUSTINE HYDROCHLORIDE
     Indication: LYMPHOMA
     Dosage: 149 MG, ONE TIME DOSE (1 IN 1 TOTAL)
     Route: 042
     Dates: start: 20180206, end: 20180206
  4. BACTRIM [Suspect]
     Active Substance: SULFAMETHOXAZOLE\TRIMETHOPRIM
     Indication: PROPHYLAXIS
     Dosage: MONDAY / WEDNESDAY / FRIDAY
     Route: 048
     Dates: start: 20180209, end: 20180219
  5. ZELITREX [Suspect]
     Active Substance: VALACYCLOVIR HYDROCHLORIDE
     Indication: PROPHYLAXIS
     Dosage: 1000 MG, QD (1 IN 1 D)
     Route: 048
     Dates: start: 20180209, end: 20180219
  6. ROCEPHINE [Suspect]
     Active Substance: CEFTRIAXONE SODIUM
     Indication: NEUTROPENIA
     Dosage: 2 MG, 1 IN 1 D
     Route: 042
     Dates: start: 20180209, end: 20180209
  7. NEULASTA [Suspect]
     Active Substance: PEGFILGRASTIM
     Indication: NEUTROPENIA
     Route: 058
     Dates: start: 20180219
  8. PRIMPERAN [Concomitant]
     Active Substance: METOCLOPRAMIDE HYDROCHLORIDE
  9. ALLOPURINOL. [Suspect]
     Active Substance: ALLOPURINOL
     Indication: TUMOUR LYSIS SYNDROME
     Dosage: 200 MG, 1 IN 1 D
     Route: 048
     Dates: start: 20180206, end: 20180209
  10. NEORECORMON [Concomitant]
     Active Substance: ERYTHROPOIETIN
  11. ECONAZOLE. [Concomitant]
     Active Substance: ECONAZOLE NITRATE

REACTIONS (4)
  - Pyrexia [Recovered/Resolved]
  - Rash maculo-papular [Recovering/Resolving]
  - Hypotension [Recovered/Resolved]
  - Hypersensitivity [Recovering/Resolving]

NARRATIVE: CASE EVENT DATE: 20180219
